FAERS Safety Report 8518594 (Version 4)
Quarter: 2015Q2

REPORT INFORMATION
  Report Type: Spontaneous
  Country: US (occurrence: US)
  Receive Date: 20120417
  Receipt Date: 20150515
  Transmission Date: 20150821
  Serious: No
  Sender: FDA-Public Use
  Company Number: US-ASTRAZENECA-2011SE69421

PATIENT
  Age: 738 Month
  Sex: Female
  Weight: 78 kg

DRUGS (12)
  1. MUSCLE RELAXERS [Concomitant]
     Active Substance: UNSPECIFIED INGREDIENT
  2. PAIN MEDICATION [Concomitant]
     Active Substance: UNSPECIFIED INGREDIENT
  3. PRILOSEC [Suspect]
     Active Substance: OMEPRAZOLE MAGNESIUM
     Indication: GASTROOESOPHAGEAL REFLUX DISEASE
     Dosage: EQUATE
     Route: 048
     Dates: start: 201503
  4. FLONASE [Concomitant]
     Active Substance: FLUTICASONE PROPIONATE
  5. ALBUTEROL INHALER [Concomitant]
     Active Substance: ALBUTEROL
  6. ADVAIR HFA [Concomitant]
     Active Substance: FLUTICASONE PROPIONATE\SALMETEROL XINAFOATE
  7. ALLERGY MEDICATION [Concomitant]
     Active Substance: DIPHENHYDRAMINE HYDROCHLORIDE
  8. PREDNISONE. [Concomitant]
     Active Substance: PREDNISONE
  9. PRILOSEC [Suspect]
     Active Substance: OMEPRAZOLE MAGNESIUM
     Indication: GASTROOESOPHAGEAL REFLUX DISEASE
     Dosage: DAILY
     Route: 048
     Dates: start: 2001, end: 2007
  10. NEXIUM [Suspect]
     Active Substance: ESOMEPRAZOLE MAGNESIUM
     Indication: GASTROOESOPHAGEAL REFLUX DISEASE
     Dosage: EVERY MORNING
     Route: 048
  11. NEXIUM [Suspect]
     Active Substance: ESOMEPRAZOLE MAGNESIUM
     Indication: GASTROOESOPHAGEAL REFLUX DISEASE
     Route: 048
     Dates: start: 2010
  12. STEROIDS [Concomitant]
     Active Substance: UNSPECIFIED INGREDIENT
     Indication: BRONCHITIS

REACTIONS (19)
  - Dyspepsia [Unknown]
  - Eructation [Unknown]
  - Drug ineffective [Unknown]
  - Arthritis [Unknown]
  - Feeling abnormal [Unknown]
  - Flatulence [Unknown]
  - Faeces discoloured [Unknown]
  - Abdominal distension [Unknown]
  - Insomnia [Unknown]
  - Vomiting [Unknown]
  - Intentional product misuse [Unknown]
  - Bursitis [Unknown]
  - Sinusitis [Unknown]
  - Scoliosis [Unknown]
  - Asthenia [Unknown]
  - Arthropathy [Unknown]
  - Vitamin D abnormal [Unknown]
  - Malaise [Unknown]
  - Influenza [Unknown]

NARRATIVE: CASE EVENT DATE: 201503
